FAERS Safety Report 5271918-5 (Version None)
Quarter: 2007Q1

REPORT INFORMATION
  Report Type: 
  Country: None (occurrence: None)
  Receive Date: 20061214
  Receipt Date: 20061004
  Transmission Date: 20070707
  Serious: Yes (Hospitalization)
  Sender: FDA-Public Use
  Company Number: 2006125145

PATIENT
  Age: 76 Year
  Sex: Female
  Weight: 50.8029 kg

DRUGS (1)
  1. BEXTRA [Suspect]
     Indication: TENDONITIS
     Dosage: 20 MG (20 MG, 1 IN 1 D)
     Dates: start: 20040922, end: 20041013

REACTIONS (1)
  - MYOCARDIAL INFARCTION [None]
